FAERS Safety Report 9204658 (Version 1)
Quarter: 2013Q2

REPORT INFORMATION
  Report Type: Spontaneous
  Country: US (occurrence: US)
  Receive Date: 20130402
  Receipt Date: 20130402
  Transmission Date: 20140414
  Serious: Yes (Other)
  Sender: FDA-Public Use
  Company Number: US-BAYER-2013-039091

PATIENT
  Age: 33 Year
  Sex: Female

DRUGS (1)
  1. MIRENA [Suspect]
     Indication: CONTRACEPTION
     Dosage: 20 MCG/24HR, CONT
     Route: 015
     Dates: start: 20080627

REACTIONS (8)
  - Pain [None]
  - Device dislocation [None]
  - Abdominal pain [None]
  - Painful defaecation [None]
  - Abdominal distension [None]
  - Uterine pain [None]
  - Adnexa uteri pain [None]
  - Flank pain [None]
